FAERS Safety Report 9841242 (Version 5)
Quarter: 2015Q4

REPORT INFORMATION
  Report Type: Report from Study
  Country: HU (occurrence: HU)
  Receive Date: 20140124
  Receipt Date: 20151018
  Transmission Date: 20160305
  Serious: Yes (Hospitalization)
  Sender: FDA-Public Use
  Company Number: HU-ROCHE-1333484

PATIENT
  Age: 82 Year
  Sex: Male
  Weight: 68 kg

DRUGS (21)
  1. CO-PRENESSA [Concomitant]
     Indication: HYPERTENSION
     Route: 065
     Dates: start: 2013
  2. INSPRA (HUNGARY) [Concomitant]
     Indication: HYPERTENSION
     Route: 065
     Dates: start: 2013, end: 201312
  3. AMLODIPINE [Concomitant]
     Active Substance: AMLODIPINE BESYLATE
     Indication: HYPERTENSION
     Route: 065
     Dates: start: 20131031, end: 201312
  4. CYCLOPHOSPHAMIDE. [Suspect]
     Active Substance: CYCLOPHOSPHAMIDE
     Indication: DIFFUSE LARGE B-CELL LYMPHOMA
     Dosage: ON 31/DEC/2013, THE PATIENT RECEIVED MOST RECENT DOSE OF CYCLOPHOSPHAMIDE 1365 MG.
     Route: 042
     Dates: start: 20130930
  5. ENOXAPARIN [Concomitant]
     Active Substance: ENOXAPARIN
     Indication: CARDIAC FAILURE
     Route: 065
     Dates: start: 20131031
  6. OBINUTUZUMAB [Suspect]
     Active Substance: OBINUTUZUMAB
     Indication: DIFFUSE LARGE B-CELL LYMPHOMA
     Dosage: ON 31/DEC/2013, THE PATIENT RECEIVED MOST RECENT DOSE OF OBINUTUZUMAB AT VOLUME 250 ML AND DOSE CONC
     Route: 042
     Dates: start: 20130930
  7. VINCRISTINE [Suspect]
     Active Substance: VINCRISTINE
     Indication: DIFFUSE LARGE B-CELL LYMPHOMA
     Dosage: ON 31/DEC/2013, THE PATIENT RECEIVED MOST RECENT DOSE OF VINCRISTINE 2 MG.
     Route: 050
     Dates: start: 20130930
  8. CLOPIDOGREL [Concomitant]
     Active Substance: CLOPIDOGREL BISULFATE
     Indication: CARDIAC FAILURE
  9. ESOMEPRAZOLE [Concomitant]
     Active Substance: ESOMEPRAZOLE
     Indication: PROPHYLAXIS
     Route: 065
     Dates: start: 2013
  10. ATORVOX [Concomitant]
     Indication: MYOCARDIAL ISCHAEMIA
     Route: 065
     Dates: start: 2013
  11. ALPRAZOLAM. [Concomitant]
     Active Substance: ALPRAZOLAM
     Indication: SLEEP DISORDER
     Route: 065
     Dates: start: 20131031
  12. BISOPROLOL [Concomitant]
     Active Substance: BISOPROLOL
     Indication: ATRIAL FIBRILLATION
  13. ASPIRIN PROTECT [Concomitant]
     Active Substance: ASPIRIN
     Indication: CARDIAC FAILURE
  14. CLOPIDOGREL [Concomitant]
     Active Substance: CLOPIDOGREL BISULFATE
     Indication: EJECTION FRACTION DECREASED
     Route: 065
     Dates: start: 20131031
  15. TAMSOL [Concomitant]
     Indication: BENIGN PROSTATIC HYPERPLASIA
     Route: 065
     Dates: start: 2013
  16. PREDNISONE. [Suspect]
     Active Substance: PREDNISONE
     Indication: DIFFUSE LARGE B-CELL LYMPHOMA
     Dosage: ON 04/JAN/2014, THE PATIENT RECEIVED MOST RECENT DOSE OF PREDNISONE 80 MG.
     Route: 048
     Dates: start: 20130930
  17. BISOPROLOL [Concomitant]
     Active Substance: BISOPROLOL
     Indication: HYPERTENSION
     Route: 065
     Dates: start: 2011
  18. KALDYUM [Concomitant]
     Active Substance: POTASSIUM CHLORIDE
     Indication: PROPHYLAXIS
     Route: 065
     Dates: start: 2013
  19. ASPIRIN PROTECT [Concomitant]
     Active Substance: ASPIRIN
     Indication: EJECTION FRACTION DECREASED
     Route: 065
     Dates: start: 20131031
  20. CORDARONE [Concomitant]
     Active Substance: AMIODARONE HYDROCHLORIDE
     Indication: ATRIAL FIBRILLATION
     Route: 065
     Dates: start: 20140113
  21. DOXORUBICIN [Suspect]
     Active Substance: DOXORUBICIN
     Indication: DIFFUSE LARGE B-CELL LYMPHOMA
     Dosage: ON 31/DEC/2013, THE PATIENT RECEIVED MOST RECENT DOSE OF DOXORUBICIN 91 MG.
     Route: 042
     Dates: start: 20130930

REACTIONS (1)
  - Fatigue [Not Recovered/Not Resolved]

NARRATIVE: CASE EVENT DATE: 20140110
